FAERS Safety Report 10476715 (Version 1)
Quarter: 2014Q3

REPORT INFORMATION
  Report Type: Report from Study
  Country: US (occurrence: US)
  Receive Date: 20140925
  Receipt Date: 20140925
  Transmission Date: 20150326
  Serious: Yes (Hospitalization, Other)
  Sender: FDA-Public Use
  Company Number: PHEH2014US018739

PATIENT
  Age: 43 Year
  Sex: Male

DRUGS (13)
  1. ENZYME [Concomitant]
     Dosage: UNK UKN, UNK
  2. TOBI PODHALER [Suspect]
     Active Substance: TOBRAMYCIN
     Indication: CYSTIC FIBROSIS LUNG
     Dosage: 112 MG, BID (TWICE A DAY)
     Route: 055
     Dates: start: 201311
  3. TOBI PODHALER [Suspect]
     Active Substance: TOBRAMYCIN
     Dosage: 28 MG, BID (TWICE A DAY)
     Route: 055
     Dates: start: 20140307, end: 201407
  4. ALBUTEROL. [Concomitant]
     Active Substance: ALBUTEROL
     Dosage: UNK UKN, UNK
  5. VITAMIN K [Concomitant]
     Active Substance: PHYTONADIONE
     Dosage: UNK UKN, UNK
  6. JANUVIA [Concomitant]
     Active Substance: SITAGLIPTIN PHOSPHATE
     Dosage: UNK UKN, UNK
  7. NEXIUM [Concomitant]
     Active Substance: ESOMEPRAZOLE MAGNESIUM
     Dosage: UNK UKN, UNK
  8. KALYDECO [Concomitant]
     Active Substance: IVACAFTOR
     Dosage: UNK UKN, UNK
  9. CREON [Concomitant]
     Active Substance: PANCRELIPASE AMYLASE\PANCRELIPASE LIPASE\PANCRELIPASE PROTEASE
     Dosage: UNK UKN, UNK
  10. NOVOLOG [Concomitant]
     Active Substance: INSULIN ASPART
     Dosage: UNK UKN, UNK
  11. LANTUS [Concomitant]
     Active Substance: INSULIN GLARGINE
     Dosage: UNK UKN, UNK
  12. HYPERTONIC SALINE SOLUTION [Concomitant]
     Active Substance: SODIUM CHLORIDE
     Dosage: UNK UKN, UNK
  13. CAYSTON [Concomitant]
     Active Substance: AZTREONAM
     Dosage: UNK UKN, UNK

REACTIONS (8)
  - Condition aggravated [Recovering/Resolving]
  - Cystic fibrosis [Recovering/Resolving]
  - Cough [Recovering/Resolving]
  - Oxygen saturation decreased [Recovering/Resolving]
  - Productive cough [Recovering/Resolving]
  - Dyspnoea [Recovering/Resolving]
  - Choking [Recovering/Resolving]
  - Pulmonary function test decreased [Recovering/Resolving]

NARRATIVE: CASE EVENT DATE: 201311
